FAERS Safety Report 8070729-5 (Version None)
Quarter: 2011Q4

REPORT INFORMATION
  Report Type: 
  Country: None (occurrence: None)
  Receive Date: 20111221
  Receipt Date: 20101202
  Transmission Date: 20120403
  Serious: Yes (Hospitalization)
  Sender: FDA-Public Use
  Company Number: PHHY2010US81895

PATIENT
  Age: 39 Year
  Sex: Female
  Weight: 82 kg

DRUGS (2)
  1. EXJADE [Suspect]
     Indication: SICKLE CELL ANAEMIA
     Dosage: 500 MG, ORAL, 125 MG, ORAL
     Route: 048
     Dates: start: 20070101
  2. EXJADE [Suspect]
     Indication: SICKLE CELL ANAEMIA
     Dosage: 500 MG, ORAL, 125 MG, ORAL
     Route: 048
     Dates: start: 20070101

REACTIONS (1)
  - SICKLE CELL ANAEMIA WITH CRISIS [None]
